FAERS Safety Report 4429973-8 (Version None)
Quarter: 2004Q3

REPORT INFORMATION
  Report Type: 
  Country: None (occurrence: None)
  Receive Date: 20040817
  Receipt Date: 20040811
  Transmission Date: 20050211
  Serious: Yes (Other)
  Sender: FDA-Public Use
  Company Number: HQWYE190011AUG04

PATIENT
  Age: 30 Year
  Sex: Female
  Weight: 69.4 kg

DRUGS (1)
  1. TRI-LEVLEN 28 [Suspect]
     Indication: ORAL CONTRACEPTION
     Dosage: 1 TABLET 1X PER 1 DAY, ORAL
     Route: 048
     Dates: start: 19890101, end: 20031201

REACTIONS (1)
  - PREMATURE MENOPAUSE [None]
